FAERS Safety Report 4377161-6 (Version None)
Quarter: 2004Q2

REPORT INFORMATION
  Report Type: 
  Country: None (occurrence: None)
  Receive Date: 20040609
  Receipt Date: 20040319
  Transmission Date: 20050107
  Serious: No
  Sender: FDA-Public Use
  Company Number: 2004201360US

PATIENT
  Age: 61 Year
  Sex: Female
  Weight: 48.5 kg

DRUGS (2)
  1. BEXTRA [Suspect]
     Dosage: 20 MG, QD
     Dates: start: 20040223, end: 20040226
  2. DARVOCET-N 100 [Concomitant]

REACTIONS (5)
  - BACK PAIN [None]
  - DECREASED APPETITE [None]
  - DIARRHOEA [None]
  - NAUSEA [None]
  - TEMPERATURE REGULATION DISORDER [None]
